FAERS Safety Report 5484471-8 (Version None)
Quarter: 2007Q4

REPORT INFORMATION
  Report Type: 
  Country: None (occurrence: None)
  Receive Date: 20071009
  Receipt Date: 20071001
  Transmission Date: 20080405
  Serious: Yes (Other)
  Sender: FDA-Public Use
  Company Number: 2007332298

PATIENT
  Age: 63 Year
  Sex: Female

DRUGS (3)
  1. BENADRYL [Suspect]
     Indication: EYE PRURITUS
  2. XALATAN [Suspect]
     Indication: GLAUCOMA
     Dosage: QD, OPHTHALMIC
     Route: 047
     Dates: start: 20040101
  3. PROTONIX [Concomitant]

REACTIONS (11)
  - CORNEAL DISORDER [None]
  - DRY EYE [None]
  - EYE IRRITATION [None]
  - EYE MOVEMENT DISORDER [None]
  - EYE PAIN [None]
  - FOREIGN BODY IN EYE [None]
  - IRIS DISORDER [None]
  - OCULAR HYPERAEMIA [None]
  - PHOTOPHOBIA [None]
  - RASH [None]
  - SUPERFICIAL INJURY OF EYE [None]
